FAERS Safety Report 15740502 (Version 1)
Quarter: 2018Q4

REPORT INFORMATION
  Report Type: Report from Study
  Country: ES (occurrence: ES)
  Receive Date: 20181219
  Receipt Date: 20181219
  Transmission Date: 20190205
  Serious: Yes (Hospitalization, Other)
  Sender: FDA-Public Use
  Company Number: ES-ROCHE-2216763

PATIENT
  Age: 52 Year
  Sex: Female
  Weight: 69 kg

DRUGS (3)
  1. ATEZOLIZUMAB. [Suspect]
     Active Substance: ATEZOLIZUMAB
     Indication: B-CELL LYMPHOMA
     Dosage: THIS WAS ALSO THE MOST RECENT DOSE OF ATEZOLIZUMAB PRIOR TO SECOND OCCURANCE OF CYTOKINE RELEASE SYN
     Route: 042
     Dates: start: 20181204
  2. RO 7082859 (CD20/C3 T-CELL BISPECIFIC MAB) [Suspect]
     Active Substance: INVESTIGATIONAL PRODUCT
     Indication: B-CELL LYMPHOMA
     Dosage: BEGINNING CYCLE 1, DAY 1, FOR UP TO 17 CYCLES (CYCLE = 21 DAYS).?DATE OF MOST RECENT DOSE OF RO70828
     Route: 042
     Dates: start: 20181114
  3. OBINUTUZUMAB. [Suspect]
     Active Substance: OBINUTUZUMAB
     Indication: B-CELL LYMPHOMA
     Dosage: PRE TREATMENT, THIS WAS ALSO THE MOST RECENT DOSE PRIOR TO OCCURANCES OF CYTOKINE RELEASE SYNDROME.
     Route: 042
     Dates: start: 20181107

REACTIONS (2)
  - Cytokine release syndrome [Recovered/Resolved]
  - Cytokine release syndrome [Recovered/Resolved]

NARRATIVE: CASE EVENT DATE: 20181114
